FAERS Safety Report 7554182-3 (Version None)
Quarter: 2011Q2

REPORT INFORMATION
  Report Type: 
  Country: None (occurrence: None)
  Receive Date: 20110617
  Receipt Date: 20110614
  Transmission Date: 20111010
  Serious: Yes (Other)
  Sender: FDA-Public Use
  Company Number: GXKR2011DE02017

PATIENT
  Age: 24 Year
  Sex: Female

DRUGS (3)
  1. MIRTAZAPINE [Concomitant]
     Indication: DEPRESSION
     Dosage: 45 MG, UNK
     Route: 048
     Dates: start: 20101101, end: 20101117
  2. CEFUROXIME [Suspect]
     Indication: DEPRESSION
     Dosage: 45 MG/DAY
     Dates: start: 20101101, end: 20101117
  3. PROMETHAZINE [Concomitant]
     Route: 048

REACTIONS (1)
  - CIRCULATORY COLLAPSE [None]
